APPROVED DRUG PRODUCT: FOAMICON
Active Ingredient: ALUMINUM HYDROXIDE; MAGNESIUM TRISILICATE
Strength: 80MG;20MG
Dosage Form/Route: TABLET, CHEWABLE;ORAL
Application: A072687 | Product #001
Applicant: NOVARTIS CONSUMER HEALTH INC
Approved: Jun 28, 1989 | RLD: No | RS: No | Type: DISCN